FAERS Safety Report 8203392-0 (Version None)
Quarter: 2012Q1

REPORT INFORMATION
  Report Type: 
  Country: None (occurrence: None)
  Receive Date: 20120312
  Receipt Date: 20120301
  Transmission Date: 20120608
  Serious: Yes (Other)
  Sender: FDA-Public Use
  Company Number: US-ASTRAZENECA-2011SE75675

PATIENT
  Age: 65 Year
  Sex: Male
  Weight: 107.5 kg

DRUGS (19)
  1. ZESTRIL [Concomitant]
     Route: 048
  2. TRILIPIX [Concomitant]
     Route: 048
  3. ALDACTONE [Concomitant]
     Route: 048
  4. KLONOPIN [Concomitant]
     Route: 048
  5. PRILOSEC [Concomitant]
     Route: 048
  6. CELEXA [Concomitant]
     Dosage: 60 Q DAY
  7. PRINIVIL [Concomitant]
     Route: 048
  8. FISH OIL [Concomitant]
  9. CRESTOR [Suspect]
     Route: 048
  10. IMDUR [Concomitant]
     Route: 048
  11. TOPROL-XL [Concomitant]
     Route: 048
  12. NITROSTAT [Concomitant]
     Route: 060
  13. ASPIRIN [Concomitant]
     Route: 048
  14. SYNTHROID [Concomitant]
     Route: 048
  15. CELEXA [Concomitant]
     Route: 048
  16. POTASSIUM [Concomitant]
  17. LANOXIN [Concomitant]
     Route: 048
  18. LASIX [Concomitant]
     Route: 048
  19. LOVAZA [Concomitant]
     Route: 048

REACTIONS (30)
  - WHEEZING [None]
  - MALAISE [None]
  - DIZZINESS [None]
  - CORONARY ARTERY DISEASE [None]
  - CONGESTIVE CARDIOMYOPATHY [None]
  - DEPRESSION [None]
  - MYALGIA [None]
  - DIABETES MELLITUS [None]
  - ERECTILE DYSFUNCTION [None]
  - BLOOD TRIGLYCERIDES INCREASED [None]
  - EJECTION FRACTION DECREASED [None]
  - CARDIAC FAILURE CONGESTIVE [None]
  - ISCHAEMIC CARDIOMYOPATHY [None]
  - LIBIDO DECREASED [None]
  - BLOOD CHOLESTEROL INCREASED [None]
  - LIVER FUNCTION TEST ABNORMAL [None]
  - ASTHENIA [None]
  - ARTHROPATHY [None]
  - BLOOD TESTOSTERONE DECREASED [None]
  - DYSLIPIDAEMIA [None]
  - ADVERSE EVENT [None]
  - BLOOD THYROID STIMULATING HORMONE INCREASED [None]
  - HYPOTHYROIDISM [None]
  - OBESITY [None]
  - ANXIETY [None]
  - MUSCLE DISORDER [None]
  - UPPER RESPIRATORY TRACT INFECTION [None]
  - POLYURIA [None]
  - HYPERTENSION [None]
  - TOBACCO ABUSE [None]
